FAERS Safety Report 9405691 (Version 2)
Quarter: 2014Q1

REPORT INFORMATION
  Report Type: Spontaneous
  Country: US (occurrence: US)
  Receive Date: 20130717
  Receipt Date: 20140210
  Transmission Date: 20141002
  Serious: Yes (Hospitalization)
  Sender: FDA-Public Use
  Company Number: US-TEVA-418932USA

PATIENT
  Age: 46 Year
  Sex: Female

DRUGS (1)
  1. CEFALEXIN [Suspect]
     Indication: URINARY TRACT INFECTION
     Dosage: ONE DOSE
     Dates: start: 20130410

REACTIONS (3)
  - Convulsion [Unknown]
  - Fall [Unknown]
  - Neck injury [Unknown]
